FAERS Safety Report 7646433-1 (Version None)
Quarter: 2011Q3

REPORT INFORMATION
  Report Type: 
  Country: None (occurrence: None)
  Receive Date: 20110725
  Receipt Date: 20110719
  Transmission Date: 20111222
  Serious: Yes (Hospitalization, Other)
  Sender: FDA-Public Use
  Company Number: 2011SP017860

PATIENT
  Age: 31 Year
  Sex: Male

DRUGS (11)
  1. GRAVOL TAB [Concomitant]
  2. MELOXICAM [Concomitant]
  3. IBUPROFEN [Concomitant]
  4. PEGETRON (PEGYLATED INTERFERON ALFA-2B W/RIBAVIRIN) [Suspect]
     Indication: HEPATITIS C
     Dosage: 150 MCG;QW;SC,  800 MG;BID;PO
     Route: 058
     Dates: start: 20101208, end: 20110411
  5. PEGETRON (PEGYLATED INTERFERON ALFA-2B W/RIBAVIRIN) [Suspect]
     Indication: HEPATITIS C
     Dosage: 150 MCG;QW;SC,  800 MG;BID;PO
     Route: 058
     Dates: start: 20101208, end: 20110406
  6. MULTI-VITAMIN [Concomitant]
  7. FOLIC ACID  VITAMIN B12  MELOXICAM  HYDROCORTISONE [Concomitant]
  8. HYDROCORTISONE [Concomitant]
  9. VITAMIN B-12 [Concomitant]
  10. METHADONE HYDROCHLORIDE [Concomitant]
  11. FOLIC ACID [Concomitant]

REACTIONS (3)
  - PULMONARY EMBOLISM [None]
  - HAEMOTHORAX [None]
  - PAIN [None]
